FAERS Safety Report 8077011-0 (Version None)
Quarter: 2012Q1

REPORT INFORMATION
  Report Type: 
  Country: None (occurrence: None)
  Receive Date: 20120127
  Receipt Date: 20120124
  Transmission Date: 20120608
  Serious: Yes (Hospitalization)
  Sender: FDA-Public Use
  Company Number: DE-GLAXOSMITHKLINE-D0074223A

PATIENT
  Sex: Female

DRUGS (1)
  1. ARIXTRA [Suspect]
     Dosage: 2.5ML PER DAY
     Route: 058
     Dates: start: 20120123

REACTIONS (4)
  - HEADACHE [None]
  - RESPIRATORY DISTRESS [None]
  - SUFFOCATION FEELING [None]
  - NAUSEA [None]
